APPROVED DRUG PRODUCT: DEXAMETHASONE SODIUM PHOSPHATE
Active Ingredient: DEXAMETHASONE SODIUM PHOSPHATE
Strength: EQ 0.1% PHOSPHATE
Dosage Form/Route: SOLUTION/DROPS;OPHTHALMIC, OTIC
Application: A088771 | Product #001
Applicant: CAPLIN STERILES LTD
Approved: Jan 16, 1985 | RLD: No | RS: No | Type: DISCN